FAERS Safety Report 18945662 (Version 3)
Quarter: 2021Q2

REPORT INFORMATION
  Report Type: Other
  Country: US (occurrence: US)
  Receive Date: 20210226
  Receipt Date: 20210511
  Transmission Date: 20210717
  Serious: Yes (Hospitalization)
  Sender: FDA-Public Use
  Company Number: US-ROCHE-2776226

PATIENT
  Sex: Male

DRUGS (6)
  1. XOLAIR [Suspect]
     Active Substance: OMALIZUMAB
  2. XOLAIR [Suspect]
     Active Substance: OMALIZUMAB
     Indication: IDIOPATHIC URTICARIA
  3. XOLAIR [Suspect]
     Active Substance: OMALIZUMAB
  4. XOLAIR [Suspect]
     Active Substance: OMALIZUMAB
  5. XOLAIR [Suspect]
     Active Substance: OMALIZUMAB
     Indication: CHRONIC SPONTANEOUS URTICARIA
     Dosage: NJECT 300MG SUBCUTANEOUSLY EVERY 4 WEEK(S)?SYRINGE 150 MG
     Route: 058
  6. XOLAIR [Suspect]
     Active Substance: OMALIZUMAB

REACTIONS (4)
  - Product dose omission issue [Unknown]
  - Intentional product use issue [Unknown]
  - Off label use [Unknown]
  - Anaphylactic shock [Unknown]
